FAERS Safety Report 8868625 (Version 1)
Quarter: 2012Q4

REPORT INFORMATION
  Report Type: 
  Country: US (occurrence: US)
  Receive Date: 20121024
  Receipt Date: 20121024
  Transmission Date: 20130627
  Serious: Yes (Hospitalization)
  Sender: FDA-Public Use
  Company Number: US-GLAXOSMITHKLINE-A0952370A

PATIENT
  Age: 43 Year
  Sex: Female
  Weight: 93.07 kg

DRUGS (24)
  1. BENLYSTA [Suspect]
     Indication: SYSTEMIC LUPUS ERYTHEMATOSUS
     Dosage: 10MGK Cyclic
     Route: 042
     Dates: start: 20111005, end: 20111228
  2. PREDNISONE [Concomitant]
     Indication: SYSTEMIC LUPUS ERYTHEMATOSUS
  3. PLAQUENIL [Concomitant]
     Indication: SYSTEMIC LUPUS ERYTHEMATOSUS
  4. METHOTREXATE [Concomitant]
     Indication: SYSTEMIC LUPUS ERYTHEMATOSUS
  5. SPIRONOLACTONE [Concomitant]
  6. XANAX [Concomitant]
     Indication: ANXIETY
  7. PILOCARPINE [Concomitant]
  8. NEURONTIN [Concomitant]
  9. HORMONES [Concomitant]
  10. TRILEPTAL [Concomitant]
  11. NIFEDIPINE [Concomitant]
  12. FOLIC ACID [Concomitant]
  13. VITAMIN D [Concomitant]
  14. PRENATAL VITAMINS [Concomitant]
  15. PREVACID [Concomitant]
  16. B12 [Concomitant]
  17. LUNESTA [Concomitant]
  18. OMNARIS [Concomitant]
  19. KLONOPIN [Concomitant]
  20. VALTREX [Concomitant]
  21. RANITIDINE [Concomitant]
  22. TYLENOL ARTHRITIS [Concomitant]
  23. ACETAMINOPHEN [Concomitant]
     Dates: start: 20111019
  24. LORATADINE [Concomitant]
     Dates: start: 20111019

REACTIONS (18)
  - Hemiparesis [Unknown]
  - Pleurisy [Unknown]
  - Chest pain [Unknown]
  - Generalised erythema [Recovered/Resolved]
  - Throat irritation [Unknown]
  - Influenza like illness [Unknown]
  - Oropharyngeal pain [Unknown]
  - Nasal congestion [Unknown]
  - Anxiety [Recovered/Resolved]
  - Sinusitis [Unknown]
  - Pain in extremity [Unknown]
  - Nausea [Recovered/Resolved]
  - Diarrhoea [Recovered/Resolved]
  - Dizziness [Recovered/Resolved]
  - Headache [Recovered/Resolved]
  - Fatigue [Recovered/Resolved]
  - Palpitations [Recovered/Resolved]
  - Malaise [Recovering/Resolving]
